FAERS Safety Report 9416285 (Version 1)
Quarter: 2013Q3

REPORT INFORMATION
  Report Type: Spontaneous
  Country: IE (occurrence: IE)
  Receive Date: 20130724
  Receipt Date: 20130724
  Transmission Date: 20140515
  Serious: Yes (Hospitalization)
  Sender: FDA-Public Use
  Company Number: IE-BRISTOL-MYERS SQUIBB COMPANY-19127729

PATIENT
  Age: 63 Year
  Sex: Male

DRUGS (1)
  1. YERVOY [Suspect]
     Indication: INTRAOCULAR MELANOMA
     Dosage: 2ND CYCLE ON 4APR13?3RD CYCLE 26APR13?4TH CYCLE 15MY13
     Dates: start: 20130225

REACTIONS (3)
  - Pyrexia [Unknown]
  - Fatigue [Unknown]
  - Cough [Unknown]
